FAERS Safety Report 14319797 (Version 1)
Quarter: 2017Q4

REPORT INFORMATION
  Report Type: Spontaneous
  Country: US (occurrence: US)
  Receive Date: 20171221
  Receipt Date: 20171221
  Transmission Date: 20180321
  Serious: No
  Sender: FDA-Public Use
  Company Number: None

PATIENT
  Sex: Female

DRUGS (1)
  1. IBRANCE [Suspect]
     Active Substance: PALBOCICLIB
     Indication: PRODUCT USED FOR UNKNOWN INDICATION
     Dosage: 125 MG DAILY FOR 21 DAYS THEN OFF FOR 7 DAYS PO
     Route: 048
     Dates: start: 20171106

REACTIONS (11)
  - Dyspnoea [None]
  - Epistaxis [None]
  - Dizziness [None]
  - Bedridden [None]
  - Diarrhoea [None]
  - Alopecia [None]
  - Nausea [None]
  - Thrombosis [None]
  - Vaginal haemorrhage [None]
  - Asthenia [None]
  - Decreased appetite [None]
